FAERS Safety Report 6075485-8 (Version None)
Quarter: 2009Q1

REPORT INFORMATION
  Report Type: 
  Country: None (occurrence: None)
  Receive Date: 20090212
  Receipt Date: 20090206
  Transmission Date: 20090719
  Serious: Yes (Hospitalization)
  Sender: FDA-Public Use
  Company Number: B0557967A

PATIENT
  Age: 13 Year
  Sex: Female

DRUGS (4)
  1. RELENZA [Suspect]
     Indication: DRUG USE FOR UNKNOWN INDICATION
     Dosage: 10MG TWICE PER DAY
     Route: 055
     Dates: start: 20090128, end: 20090130
  2. ASVERIN [Concomitant]
     Route: 048
     Dates: start: 20090128, end: 20090202
  3. MUCOSOLVAN [Concomitant]
     Route: 048
     Dates: start: 20090128, end: 20090202
  4. BIOFERMIN R [Concomitant]
     Route: 048

REACTIONS (2)
  - ALTERED STATE OF CONSCIOUSNESS [None]
  - FALL [None]
